FAERS Safety Report 11320951 (Version 1)
Quarter: 2015Q2

REPORT INFORMATION
  Report Type: Spontaneous
  Country: US (occurrence: None)
  Receive Date: 20150626
  Receipt Date: 20150626
  Transmission Date: 20150822
  Serious: No
  Sender: FDA-Public Use
  Company Number: 1000076810

PATIENT
  Sex: Female

DRUGS (4)
  1. LINZESS [Suspect]
     Active Substance: LINACLOTIDE
     Route: 048
  2. B-12 (CYANOCOBALAMIN) [Concomitant]
  3. SINEMET (SINEMET) [Concomitant]
  4. KLONOPIN [Concomitant]
     Active Substance: CLONAZEPAM

REACTIONS (4)
  - Speech disorder [None]
  - Slow speech [None]
  - Unevaluable event [None]
  - Dizziness [None]
